FAERS Safety Report 9123632 (Version 2)
Quarter: 2013Q2

REPORT INFORMATION
  Report Type: Spontaneous
  Country: FR (occurrence: FR)
  Receive Date: 20130227
  Receipt Date: 20130521
  Transmission Date: 20140414
  Serious: Yes (Other)
  Sender: FDA-Public Use
  Company Number: FR-BAUSCH-BL-2013-001124

PATIENT
  Age: 81 Year
  Sex: Male

DRUGS (4)
  1. YELLOX 0.9 MG/ML EYE DROPS, SOLUTION [Suspect]
     Indication: POSTOPERATIVE CARE
     Route: 047
     Dates: start: 201211, end: 201211
  2. YELLOX 0.9 MG/ML EYE DROPS, SOLUTION [Suspect]
     Indication: CATARACT OPERATION
     Route: 047
     Dates: start: 20121206, end: 201212
  3. CHIBRO-CADRON [Suspect]
     Indication: POSTOPERATIVE CARE
     Route: 047
     Dates: start: 201211
  4. CHIBRO-CADRON [Suspect]
     Indication: CATARACT OPERATION

REACTIONS (2)
  - Macular oedema [Recovered/Resolved]
  - Visual acuity reduced [Recovered/Resolved]
